FAERS Safety Report 15308164 (Version 1)
Quarter: 2018Q3

REPORT INFORMATION
  Report Type: Spontaneous
  Country: IT (occurrence: IT)
  Receive Date: 20180822
  Receipt Date: 20180822
  Transmission Date: 20181010
  Serious: Yes (Hospitalization)
  Sender: FDA-Public Use
  Company Number: IT-TEVA-2018-IT-946048

PATIENT
  Age: 16 Year
  Sex: Female

DRUGS (4)
  1. PARACETAMOL [Suspect]
     Active Substance: ACETAMINOPHEN
     Indication: SUICIDE ATTEMPT
     Dosage: 4 G TOTAL
     Route: 048
     Dates: start: 20111009, end: 20111009
  2. CLARITHROMYCIN. [Suspect]
     Active Substance: CLARITHROMYCIN
     Indication: SUICIDE ATTEMPT
     Dosage: 7G/TOTAL
     Route: 048
     Dates: start: 20111009, end: 20111009
  3. IBUPROFEN. [Suspect]
     Active Substance: IBUPROFEN
     Indication: SUICIDE ATTEMPT
     Dosage: 6 G/TOTAL
     Route: 048
     Dates: start: 20111009, end: 20111009
  4. BISACODYL. [Suspect]
     Active Substance: BISACODYL
     Indication: SUICIDE ATTEMPT
     Dosage: 50 MG/TOTAL
     Route: 048
     Dates: start: 20111009, end: 20111009

REACTIONS (5)
  - Intentional overdose [Recovering/Resolving]
  - Hypotension [Recovering/Resolving]
  - Vomiting [Recovering/Resolving]
  - Abdominal pain upper [Recovering/Resolving]
  - Suicide attempt [Recovering/Resolving]

NARRATIVE: CASE EVENT DATE: 20111009
